FAERS Safety Report 6634521-8 (Version None)
Quarter: 2010Q2

REPORT INFORMATION
  Report Type: 
  Country: None (occurrence: None)
  Receive Date: 20100225
  Receipt Date: 20090121
  Transmission Date: 20101027
  Serious: Yes (Hospitalization)
  Sender: FDA-Public Use
  Company Number: 586172

PATIENT
  Age: 15 Year
  Sex: Male
  Weight: 90.7 kg

DRUGS (7)
  1. ACCUTANE [Suspect]
     Indication: ACNE
     Dosage: 40 MG 1 PER DAY
     Dates: start: 19980219, end: 20010601
  2. ADVAIR DISKUS 100/50 [Concomitant]
  3. COMBIVENT (IPRATROPIUM BROMIDE/SALBUTAMOL) [Concomitant]
  4. PSORCON OINTMENT (DIFLORASONE DIACETATE) [Concomitant]
  5. BENZASHAVE (BENZOYL PEROXIDE) [Concomitant]
  6. SINGULAIR [Suspect]
  7. TRIAZ(BENZOYL PEROXIDE) [Concomitant]

REACTIONS (14)
  - ACNE [None]
  - BLOOD ALBUMIN INCREASED [None]
  - COLITIS ULCERATIVE [None]
  - CROHN'S DISEASE [None]
  - DEPRESSION [None]
  - DRY SKIN [None]
  - ERYTHEMA [None]
  - FRACTURE [None]
  - INFLAMMATORY BOWEL DISEASE [None]
  - LIGAMENT SPRAIN [None]
  - LIP DRY [None]
  - LIP SWELLING [None]
  - MENTAL STATUS CHANGES [None]
  - PHARYNGITIS [None]
